FAERS Safety Report 14226645 (Version 1)
Quarter: 2017Q4

REPORT INFORMATION
  Report Type: Spontaneous
  Country: JP (occurrence: JP)
  Receive Date: 20171127
  Receipt Date: 20171127
  Transmission Date: 20180321
  Serious: Yes (Other)
  Sender: FDA-Public Use
  Company Number: JP-BRISTOL-MYERS SQUIBB COMPANY-BMS-2017-106815

PATIENT

DRUGS (2)
  1. BARACLUDE [Suspect]
     Active Substance: ENTECAVIR
     Indication: HEPATITIS B
     Dosage: UNK
     Route: 065
  2. HYDREA [Suspect]
     Active Substance: HYDROXYUREA
     Indication: THROMBOCYTOSIS
     Dosage: UNK
     Route: 065

REACTIONS (2)
  - Cerebral infarction [Unknown]
  - Oral administration complication [Unknown]
